FAERS Safety Report 19484224 (Version 2)
Quarter: 2021Q3

REPORT INFORMATION
  Report Type: Spontaneous
  Country: JP (occurrence: JP)
  Receive Date: 20210702
  Receipt Date: 20210801
  Transmission Date: 20211014
  Serious: Yes (Other)
  Sender: FDA-Public Use
  Company Number: NVSJ2021JP009879

PATIENT
  Age: 72 Year
  Sex: Male

DRUGS (6)
  1. METFORMIN [Concomitant]
     Active Substance: METFORMIN HYDROCHLORIDE
     Indication: DIABETES MELLITUS
     Dosage: 1000 MG
     Route: 065
  2. ENTRESTO [Suspect]
     Active Substance: SACUBITRIL\VALSARTAN
     Indication: CARDIAC FAILURE
     Dosage: 50 MG
     Route: 048
  3. ENTRESTO [Suspect]
     Active Substance: SACUBITRIL\VALSARTAN
     Dosage: 100 MG
     Route: 048
     Dates: start: 202101
  4. ENTRESTO [Suspect]
     Active Substance: SACUBITRIL\VALSARTAN
     Dosage: 100 MG
     Route: 048
  5. ENTRESTO [Suspect]
     Active Substance: SACUBITRIL\VALSARTAN
     Dosage: 200 MG
     Route: 048
  6. EQUA TAB [Suspect]
     Active Substance: VILDAGLIPTIN
     Indication: TYPE 2 DIABETES MELLITUS
     Dosage: 100 MG
     Route: 048

REACTIONS (13)
  - Colon cancer [Unknown]
  - Bundle branch block left [Unknown]
  - Oedema peripheral [Unknown]
  - Hypothyroidism [Unknown]
  - Dyspnoea [Unknown]
  - Abdominal distension [Unknown]
  - Ejection fraction decreased [Recovering/Resolving]
  - Diabetes mellitus inadequate control [Unknown]
  - Disease progression [Unknown]
  - Cardiac failure [Recovering/Resolving]
  - Weight increased [Unknown]
  - Goitre [Unknown]
  - Renal impairment [Unknown]

NARRATIVE: CASE EVENT DATE: 201902
